FAERS Safety Report 13519422 (Version 3)
Quarter: 2019Q3

REPORT INFORMATION
  Report Type: Report from Study
  Country: US (occurrence: US)
  Receive Date: 20170505
  Receipt Date: 20190923
  Transmission Date: 20191004
  Serious: Yes (Hospitalization)
  Sender: FDA-Public Use
  Company Number: US-ACTELION-A-NJ2017-153484

PATIENT
  Sex: Male
  Weight: 111.11 kg

DRUGS (3)
  1. DILTIAZEM. [Concomitant]
     Active Substance: DILTIAZEM
  2. COUMADIN [Concomitant]
     Active Substance: WARFARIN SODIUM
  3. VENTAVIS [Suspect]
     Active Substance: ILOPROST
     Indication: PULMONARY ARTERIAL HYPERTENSION
     Dosage: 5 MCG, 6 - 9 TIMES PER DAY
     Route: 055

REACTIONS (5)
  - Localised infection [Unknown]
  - Cellulitis [Unknown]
  - Pleural effusion [Unknown]
  - Neck pain [Unknown]
  - Kidney infection [Unknown]
